FAERS Safety Report 21487576 (Version 1)
Quarter: 2022Q4

REPORT INFORMATION
  Report Type: Spontaneous
  Country: US (occurrence: US)
  Receive Date: 20221020
  Receipt Date: 20221020
  Transmission Date: 20230113
  Serious: Yes (Other)
  Sender: FDA-Public Use
  Company Number: US-PFIZER INC-2020343119

PATIENT
  Age: 67 Year
  Sex: Male

DRUGS (1)
  1. SIROLIMUS [Suspect]
     Active Substance: SIROLIMUS
     Indication: Liver disorder
     Dosage: 2 MG, 1X/DAY
     Route: 048

REACTIONS (5)
  - Seizure [Unknown]
  - Memory impairment [Unknown]
  - Illness [Unknown]
  - Off label use [Unknown]
  - Product dose omission in error [Unknown]
